FAERS Safety Report 21658073 (Version 2)
Quarter: 2023Q1

REPORT INFORMATION
  Report Type: Report from Study
  Country: US (occurrence: US)
  Receive Date: 20221129
  Receipt Date: 20230130
  Transmission Date: 20230417
  Serious: Yes (Death, Hospitalization)
  Sender: FDA-Public Use
  Company Number: US-BAYER-2022P023387

PATIENT
  Age: 85 Year
  Sex: Male
  Weight: 68.027 kg

DRUGS (4)
  1. ADEMPAS [Suspect]
     Active Substance: RIOCIGUAT
     Indication: Pulmonary arterial hypertension
     Dates: start: 20170317, end: 20221108
  2. ADEMPAS [Suspect]
     Active Substance: RIOCIGUAT
     Indication: Pulmonary arterial hypertension
     Dosage: 2.5 MG, TID
     Route: 048
  3. UPTRAVI [Concomitant]
     Active Substance: SELEXIPAG
  4. OPSUMIT [Concomitant]
     Active Substance: MACITENTAN

REACTIONS (6)
  - Cardiogenic shock [Fatal]
  - Cardiac failure acute [Fatal]
  - Feeling abnormal [None]
  - Colon cancer [None]
  - Hypotension [None]
  - Diarrhoea [None]

NARRATIVE: CASE EVENT DATE: 20221108
